FAERS Safety Report 4349884-6 (Version None)
Quarter: 2004Q2

REPORT INFORMATION
  Report Type: 
  Country: None (occurrence: None)
  Receive Date: 20040428
  Receipt Date: 20040428
  Transmission Date: 20050107
  Serious: No
  Sender: FDA-Public Use
  Company Number: None

PATIENT
  Age: 26 Year
  Sex: Female
  Weight: 59.8748 kg

DRUGS (1)
  1. ORTHO CYCLEN-28 [Suspect]
     Dosage: ONE TAB PO Q DAY
     Route: 048
     Dates: start: 20040312

REACTIONS (2)
  - NAUSEA [None]
  - PHARMACEUTICAL PRODUCT COMPLAINT [None]
